FAERS Safety Report 6389646-1 (Version None)
Quarter: 2009Q4

REPORT INFORMATION
  Report Type: 
  Country: None (occurrence: None)
  Receive Date: 20091006
  Receipt Date: 20091001
  Transmission Date: 20100525
  Serious: Yes (Death)
  Sender: FDA-Public Use
  Company Number: PHHY2009KR42345

PATIENT
  Sex: Female

DRUGS (2)
  1. EXJADE [Suspect]
     Indication: APLASTIC ANAEMIA
     Dosage: 1000 MG DAILY
     Route: 048
     Dates: start: 20080208, end: 20081125
  2. EXJADE [Suspect]
     Indication: IRON OVERLOAD

REACTIONS (1)
  - DEATH [None]
